FAERS Safety Report 17068078 (Version 3)
Quarter: 2020Q1

REPORT INFORMATION
  Report Type: Spontaneous
  Country: US (occurrence: US)
  Receive Date: 20191122
  Receipt Date: 20200224
  Transmission Date: 20200409
  Serious: Yes (Hospitalization)
  Sender: FDA-Public Use
  Company Number: US-CELGENEUS-USA-20191107605

PATIENT
  Age: 73 Year
  Sex: Male
  Weight: 70 kg

DRUGS (20)
  1. VIDAZA [Suspect]
     Active Substance: AZACITIDINE
     Indication: MYELODYSPLASTIC SYNDROME
     Dosage: 75 MILLIGRAM/SQ. METER
     Route: 058
     Dates: start: 20190820, end: 20190826
  2. ARNICA MONTANA. [Concomitant]
     Active Substance: HOMEOPATHICS
     Indication: ANTIVIRAL PROPHYLAXIS
     Route: 065
     Dates: start: 20190823, end: 20190903
  3. DEXAMETHASONE. [Concomitant]
     Active Substance: DEXAMETHASONE
     Indication: STOMATITIS
     Route: 060
     Dates: start: 20190828
  4. DIPHENHYDRAMINE HYDROCHLORIDE. [Concomitant]
     Active Substance: DIPHENHYDRAMINE HYDROCHLORIDE
     Indication: TRANSFUSION
     Dosage: 25 MILLIGRAM
     Route: 048
     Dates: start: 20190723
  5. FAMOTIDINE. [Concomitant]
     Active Substance: FAMOTIDINE
     Indication: TRANSFUSION
     Dosage: 20 MILLIGRAM
     Route: 048
     Dates: start: 20190723
  6. POTASSIUM CHLORIDE. [Concomitant]
     Active Substance: POTASSIUM CHLORIDE
     Dosage: 50 MILLIEQUIVALENTS
     Route: 065
     Dates: start: 20190914, end: 20190914
  7. POTASSIUM CHLORIDE. [Concomitant]
     Active Substance: POTASSIUM CHLORIDE
     Dosage: 40 MILLIEQUIVALENTS
     Route: 065
     Dates: start: 20190921, end: 20190927
  8. OXYCODONE HYDROCHLORIDE. [Concomitant]
     Active Substance: OXYCODONE HYDROCHLORIDE
     Indication: PAIN IN EXTREMITY
     Dosage: 5 MILLIGRAM
     Route: 048
     Dates: start: 20190820, end: 20190927
  9. ONDANSETRON HYDROCHLORIDE. [Concomitant]
     Active Substance: ONDANSETRON HYDROCHLORIDE
     Indication: PREMEDICATION
     Dosage: 16 MILLIGRAM
     Route: 048
     Dates: start: 20190820
  10. VENETOCLAX. [Concomitant]
     Active Substance: VENETOCLAX
     Indication: MYELODYSPLASTIC SYNDROME
     Dosage: 400 MILLIGRAM
     Route: 048
     Dates: start: 20190820, end: 20190901
  11. ASCORBIC ACID. [Concomitant]
     Active Substance: ASCORBIC ACID
     Indication: ROUTINE HEALTH MAINTENANCE
     Route: 048
     Dates: start: 2008
  12. MOXIFLOXACIN HYDROCHLORIDE. [Concomitant]
     Active Substance: MOXIFLOXACIN HYDROCHLORIDE
     Indication: ANTIBIOTIC PROPHYLAXIS
     Dosage: 400 MILLIGRAM
     Route: 048
     Dates: start: 20190730, end: 20190902
  13. POTASSIUM CHLORIDE. [Concomitant]
     Active Substance: POTASSIUM CHLORIDE
     Indication: HYPOKALAEMIA
     Dosage: 60 MILLIEQUIVALENTS
     Route: 065
     Dates: start: 20190910, end: 20190910
  14. TRANEXAMIC ACID. [Concomitant]
     Active Substance: TRANEXAMIC ACID
     Indication: THROMBOCYTOPENIA
     Dosage: 3900 MILLIGRAM
     Route: 048
     Dates: start: 20190820, end: 20190901
  15. PARACETAMOL [Concomitant]
     Active Substance: ACETAMINOPHEN
     Indication: TRANSFUSION
     Route: 048
     Dates: start: 20190820
  16. POTASSIUM CHLORIDE. [Concomitant]
     Active Substance: POTASSIUM CHLORIDE
     Dosage: 40 MILLIEQUIVALENTS
     Route: 065
     Dates: start: 20190928
  17. ACYCLOVIR SODIUM. [Concomitant]
     Active Substance: ACYCLOVIR SODIUM
     Indication: ANTIVIRAL PROPHYLAXIS
     Dosage: 800 MILLIGRAM
     Route: 065
     Dates: start: 20190730
  18. UBIDECARENONE [Concomitant]
     Active Substance: UBIDECARENONE
     Indication: ROUTINE HEALTH MAINTENANCE
     Dosage: 10 MILLIGRAM
     Route: 048
     Dates: start: 2008, end: 20190927
  19. GABAPENTIN. [Concomitant]
     Active Substance: GABAPENTIN
     Indication: PAIN IN EXTREMITY
     Dosage: 100 MILLIGRAM
     Route: 048
     Dates: start: 20190814, end: 20190927
  20. MONASCUS PURPUREUS [Concomitant]
     Active Substance: RED YEAST
     Indication: ROUTINE HEALTH MAINTENANCE
     Dosage: 400 MILLIGRAM
     Route: 048
     Dates: start: 200804, end: 20190927

REACTIONS (1)
  - Cholangitis [Recovered/Resolved]

NARRATIVE: CASE EVENT DATE: 20190901
